FAERS Safety Report 6615127-3 (Version None)
Quarter: 2010Q1

REPORT INFORMATION
  Report Type: 
  Country: None (occurrence: None)
  Receive Date: 20100305
  Receipt Date: 20100301
  Transmission Date: 20100710
  Serious: Yes (Other)
  Sender: FDA-Public Use
  Company Number: TN-BRISTOL-MYERS SQUIBB COMPANY-14995047

PATIENT
  Age: 56 Year
  Sex: Male

DRUGS (2)
  1. IRBESARTAN + HCTZ [Suspect]
     Indication: HYPERTENSION
     Dosage: DOSAGE:STARTED FOR ABOUT 8 MONTHS.
  2. FUROSEMIDE [Suspect]
     Indication: HYPERTENSION

REACTIONS (1)
  - LICHENOID KERATOSIS [None]
